FAERS Safety Report 10613208 (Version 34)
Quarter: 2021Q1

REPORT INFORMATION
  Report Type: Other
  Country: CA (occurrence: CA)
  Receive Date: 20141128
  Receipt Date: 20210322
  Transmission Date: 20210419
  Serious: Yes (Hospitalization, Other)
  Sender: FDA-Public Use
  Company Number: CA-ROCHE-1147324

PATIENT
  Age: 70 Year
  Sex: Female
  Weight: 67 kg

DRUGS (14)
  1. ACTEMRA [Suspect]
     Active Substance: TOCILIZUMAB
     Route: 042
     Dates: start: 20190605
  2. ACTEMRA [Suspect]
     Active Substance: TOCILIZUMAB
     Dosage: ON HOLD
     Route: 042
     Dates: start: 20130613, end: 20190508
  3. OMEGA 3 [Concomitant]
     Active Substance: OMEGA-3 FATTY ACIDS
  4. ACTEMRA [Suspect]
     Active Substance: TOCILIZUMAB
     Route: 042
     Dates: start: 20190719, end: 20190719
  5. IBUPROFEN. [Concomitant]
     Active Substance: IBUPROFEN
  6. ACTEMRA [Suspect]
     Active Substance: TOCILIZUMAB
     Indication: RHEUMATOID ARTHRITIS
     Route: 042
     Dates: start: 20120919, end: 20130513
  7. RITUXAN [Suspect]
     Active Substance: RITUXIMAB
     Indication: RHEUMATOID ARTHRITIS
     Route: 042
     Dates: start: 20110119, end: 20120430
  8. PREDNISONE. [Concomitant]
     Active Substance: PREDNISONE
  9. ACTEMRA [Suspect]
     Active Substance: TOCILIZUMAB
     Route: 042
     Dates: start: 20201123
  10. VITAMIN C [Concomitant]
     Active Substance: ASCORBIC ACID
  11. HYDROMORPHONE [Concomitant]
     Active Substance: HYDROMORPHONE
  12. ACTEMRA [Suspect]
     Active Substance: TOCILIZUMAB
     Route: 042
     Dates: start: 20120415, end: 20120501
  13. DILAUDID [Concomitant]
     Active Substance: HYDROMORPHONE HYDROCHLORIDE
  14. CALCIUM [Concomitant]
     Active Substance: CALCIUM

REACTIONS (29)
  - Pneumonia [Unknown]
  - Contusion [Not Recovered/Not Resolved]
  - Hypotension [Unknown]
  - Pulmonary mass [Unknown]
  - Lung neoplasm malignant [Unknown]
  - Infected bite [Not Recovered/Not Resolved]
  - Nasopharyngitis [Not Recovered/Not Resolved]
  - Joint range of motion decreased [Not Recovered/Not Resolved]
  - Nasopharyngitis [Recovering/Resolving]
  - Infusion related reaction [Unknown]
  - Blood pressure diastolic increased [Unknown]
  - Blood pressure increased [Unknown]
  - Arthralgia [Not Recovered/Not Resolved]
  - Weight decreased [Recovering/Resolving]
  - Oral herpes [Unknown]
  - Pharyngitis streptococcal [Unknown]
  - Mass [Not Recovered/Not Resolved]
  - Herpes zoster [Not Recovered/Not Resolved]
  - Burning sensation [Not Recovered/Not Resolved]
  - Blood pressure diastolic decreased [Unknown]
  - Cataract [Unknown]
  - Bronchitis [Recovered/Resolved]
  - Urticaria [Not Recovered/Not Resolved]
  - Weight increased [Unknown]
  - Rheumatoid arthritis [Not Recovered/Not Resolved]
  - Tooth infection [Recovered/Resolved]
  - Pruritus [Not Recovered/Not Resolved]
  - Blood pressure diastolic decreased [Unknown]
  - Blood pressure systolic increased [Unknown]

NARRATIVE: CASE EVENT DATE: 2012
